FAERS Safety Report 23452750 (Version 1)
Quarter: 2024Q1

REPORT INFORMATION
  Report Type: Spontaneous
  Country: US (occurrence: US)
  Receive Date: 20240129
  Receipt Date: 20240129
  Transmission Date: 20240410
  Serious: No
  Sender: FDA-Public Use
  Company Number: US-SAREPTA THERAPEUTICS INC.-SRP2023-003870

PATIENT
  Age: 3 Year
  Sex: Male
  Weight: 15.873 kg

DRUGS (2)
  1. AMONDYS 45 [Suspect]
     Active Substance: CASIMERSEN
     Indication: Duchenne muscular dystrophy
     Dosage: 500 MILLIGRAM, WEEKLY
     Route: 042
     Dates: start: 20210622, end: 20230927
  2. AMONDYS 45 [Suspect]
     Active Substance: CASIMERSEN
     Dosage: 500 MILLIGRAM, WEEKLY
     Route: 042
     Dates: start: 20231011

REACTIONS (2)
  - Intentional dose omission [Unknown]
  - No adverse event [Unknown]

NARRATIVE: CASE EVENT DATE: 20231004
